FAERS Safety Report 7087914-1 (Version None)
Quarter: 2010Q4

REPORT INFORMATION
  Report Type: 
  Country: None (occurrence: None)
  Receive Date: 20101108
  Receipt Date: 20101022
  Transmission Date: 20110411
  Serious: Yes (Hospitalization)
  Sender: FDA-Public Use
  Company Number: GR-US-EMD SERONO, INC.-7024195

PATIENT
  Sex: Female
  Weight: 58 kg

DRUGS (4)
  1. GONAL-F [Suspect]
     Indication: OVULATION INDUCTION
     Route: 058
     Dates: start: 20100906, end: 20100909
  2. GONAL-F [Suspect]
     Route: 058
     Dates: start: 20100910, end: 20100914
  3. CETROTIDE [Concomitant]
     Indication: IN VITRO FERTILISATION
     Route: 058
     Dates: start: 20100910, end: 20100914
  4. OVIDREL (CHORIOGONADOTROPIN ALFA FOR INJECTION) [Concomitant]
     Indication: IN VITRO FERTILISATION
     Route: 058
     Dates: start: 20100914, end: 20100914

REACTIONS (1)
  - ECTOPIC PREGNANCY [None]
